FAERS Safety Report 6444951-5 (Version None)
Quarter: 2009Q4

REPORT INFORMATION
  Report Type: 
  Country: None (occurrence: None)
  Receive Date: 20091118
  Receipt Date: 20090825
  Transmission Date: 20100525
  Serious: No
  Sender: FDA-Public Use
  Company Number: US-BAYER-200919288NA

PATIENT

DRUGS (2)
  1. ULTRAVIST 370 [Suspect]
     Indication: DRUG USE FOR UNKNOWN INDICATION
  2. ULTRAVIST 370 [Suspect]

REACTIONS (1)
  - ADVERSE EVENT [None]
